FAERS Safety Report 5672241-7 (Version None)
Quarter: 2008Q1

REPORT INFORMATION
  Report Type: 
  Country: None (occurrence: None)
  Receive Date: 20080317
  Receipt Date: 20080306
  Transmission Date: 20080703
  Serious: Yes (Hospitalization)
  Sender: FDA-Public Use
  Company Number: 220032J08USA

PATIENT
  Age: 53 Year
  Sex: Female

DRUGS (5)
  1. SAIZEN [Suspect]
     Indication: GROWTH HORMONE DEFICIENCY
     Dosage: 0.35 MG
     Dates: start: 20070301, end: 20071201
  2. CORTEF        (HYDROCORTISONE /00028601/) [Concomitant]
  3. LEVOXYL [Concomitant]
  4. LIPITOR [Concomitant]
  5. TRICOR           (FENOFIRBRATE) [Concomitant]

REACTIONS (10)
  - BLINDNESS [None]
  - CRANIOPHARYNGIOMA [None]
  - DISEASE RECURRENCE [None]
  - INTRACRANIAL HYPOTENSION [None]
  - MALAISE [None]
  - NAUSEA [None]
  - PNEUMONIA ASPIRATION [None]
  - PYREXIA [None]
  - RHINORRHOEA [None]
  - VISUAL DISTURBANCE [None]
